FAERS Safety Report 12461095 (Version 1)
Quarter: 2016Q2

REPORT INFORMATION
  Report Type: Spontaneous
  Country: US (occurrence: US)
  Receive Date: 20160613
  Receipt Date: 20160613
  Transmission Date: 20160815
  Serious: No
  Sender: FDA-Public Use
  Company Number: US-US WORLDMEDS, LLC-USW201510-000285

PATIENT
  Age: 60 Year
  Sex: Female
  Weight: 52.62 kg

DRUGS (12)
  1. LIDODERM [Concomitant]
     Active Substance: LIDOCAINE
     Dates: start: 20130801
  2. CLONAZEPAM. [Concomitant]
     Active Substance: CLONAZEPAM
     Route: 048
     Dates: start: 20150505
  3. SYNTHROID [Concomitant]
     Active Substance: LEVOTHYROXINE SODIUM
  4. TRIMETHOBENZAMIDE HYDROCHLORIDE. [Concomitant]
     Active Substance: TRIMETHOBENZAMIDE HYDROCHLORIDE
     Route: 048
     Dates: start: 20150717
  5. APOKYN [Suspect]
     Active Substance: APOMORPHINE HYDROCHLORIDE
     Indication: PARKINSON^S DISEASE
     Route: 058
     Dates: start: 20150918
  6. ALPRAZOLAM. [Concomitant]
     Active Substance: ALPRAZOLAM
     Route: 048
     Dates: start: 20140805
  7. XANAX [Concomitant]
     Active Substance: ALPRAZOLAM
     Dates: start: 20140502
  8. APOKYN [Suspect]
     Active Substance: APOMORPHINE HYDROCHLORIDE
     Route: 058
     Dates: start: 20150723
  9. COMTAN [Concomitant]
     Active Substance: ENTACAPONE
     Route: 048
     Dates: start: 20140117
  10. LIDOCAINE, KETOPROFEN, GABPENTIN, AMITRYPTLINE TOPICAL CREAM [Concomitant]
     Dates: start: 20131108
  11. CARBIDOPA-LEVODOPA [Concomitant]
     Active Substance: CARBIDOPA\LEVODOPA
     Route: 048
     Dates: start: 20150623
  12. MIRAPEX [Concomitant]
     Active Substance: PRAMIPEXOLE DIHYDROCHLORIDE
     Route: 048
     Dates: start: 20150526

REACTIONS (2)
  - Chills [Not Recovered/Not Resolved]
  - Drug effect delayed [Unknown]

NARRATIVE: CASE EVENT DATE: 20150923
